FAERS Safety Report 20129653 (Version 1)
Quarter: 2021Q4

REPORT INFORMATION
  Report Type: Spontaneous
  Country: US (occurrence: US)
  Receive Date: 20211130
  Receipt Date: 20211130
  Transmission Date: 20220303
  Serious: Yes (Other)
  Sender: FDA-Public Use
  Company Number: US-LUPIN PHARMACEUTICALS INC.-2021-23368

PATIENT
  Sex: Female

DRUGS (7)
  1. DECITABINE [Suspect]
     Active Substance: DECITABINE
     Indication: Acute myeloid leukaemia
     Dosage: UNK (RECEIVED 2 CYCLES)
     Route: 065
  2. INVESTIGATIONAL PRODUCT [Concomitant]
     Active Substance: INVESTIGATIONAL PRODUCT
     Indication: Acute myeloid leukaemia refractory
     Dosage: 300 MILLIGRAM/SQ. METER (FOR 2 WEEKS)
     Route: 065
  3. INVESTIGATIONAL PRODUCT [Concomitant]
     Active Substance: INVESTIGATIONAL PRODUCT
     Dosage: 300 MILLIGRAM/SQ. METER (ADMINISTERED WEEKLY BETWEEN DAY 64 TO DAY 78)
     Route: 065
  4. INVESTIGATIONAL PRODUCT [Concomitant]
     Active Substance: INVESTIGATIONAL PRODUCT
     Dosage: 300 MILLIGRAM/SQ. METER (ADMINISTERED EVERY 2 WEEKS BETWEEN DAY 92 TO DAY 106)
     Route: 065
  5. INVESTIGATIONAL PRODUCT [Concomitant]
     Active Substance: INVESTIGATIONAL PRODUCT
     Dosage: 300 MILLIGRAM/SQ. METER (ADMINISTERED MONTHLY UNTIL DAY 190)
     Route: 065
  6. INVESTIGATIONAL PRODUCT [Concomitant]
     Active Substance: INVESTIGATIONAL PRODUCT
     Dosage: 300 MILLIGRAM/SQ. METER (ADMINISTERED EVERY 2 TO 3 WEEKS FOR MORE THAN 600 DAYS (AS OF THE TIME OF T
     Route: 065
  7. RUXOLITINIB [Concomitant]
     Active Substance: RUXOLITINIB
     Indication: Graft versus host disease
     Dosage: UNK
     Route: 065

REACTIONS (1)
  - Therapy non-responder [Unknown]
